FAERS Safety Report 17168589 (Version 2)
Quarter: 2019Q4

REPORT INFORMATION
  Report Type: Spontaneous
  Country: NZ (occurrence: NZ)
  Receive Date: 20191218
  Receipt Date: 20191218
  Transmission Date: 20200122
  Serious: Yes (Other)
  Sender: FDA-Public Use
  Company Number: NZ-ACCORD-162677

PATIENT
  Age: 71 Year
  Sex: Male

DRUGS (1)
  1. OXALIPLATIN. [Suspect]
     Active Substance: OXALIPLATIN
     Indication: COLORECTAL CANCER

REACTIONS (5)
  - Muscle spasms [Unknown]
  - Muscle contractions involuntary [Unknown]
  - Decreased vibratory sense [Unknown]
  - Myotonia [Unknown]
  - Paraesthesia [Unknown]
